FAERS Safety Report 15422801 (Version 1)
Quarter: 2018Q3

REPORT INFORMATION
  Report Type: Report from Study
  Country: IT (occurrence: IT)
  Receive Date: 20180925
  Receipt Date: 20180925
  Transmission Date: 20181010
  Serious: Yes (Other)
  Sender: FDA-Public Use
  Company Number: IT-TEVA-2018-IT-958128

PATIENT
  Age: 14 Year
  Sex: Male

DRUGS (2)
  1. MACLADIN 500 MG COMPRESSE RIVESTITE [Concomitant]
     Indication: PHARYNGOTONSILLITIS
     Route: 048
  2. IBUPROFEN LYSINE. [Suspect]
     Active Substance: IBUPROFEN LYSINE
     Indication: PHARYNGOTONSILLITIS
     Dosage: 2 DOSAGE FORMS DAILY;
     Route: 048

REACTIONS (1)
  - Abdominal pain upper [Recovering/Resolving]

NARRATIVE: CASE EVENT DATE: 20180819
